FAERS Safety Report 9531901 (Version 1)
Quarter: 2013Q3

REPORT INFORMATION
  Report Type: Spontaneous
  Country: ZA (occurrence: None)
  Receive Date: 20130916
  Receipt Date: 20130916
  Transmission Date: 20140515
  Serious: Yes (Other)
  Sender: FDA-Public Use
  Company Number: AUR-APL-2013-07622

PATIENT
  Sex: Female

DRUGS (1)
  1. STAVUDINE [Suspect]
     Indication: ANTIRETROVIRAL THERAPY

REACTIONS (2)
  - Lipodystrophy acquired [None]
  - Mitochondrial toxicity [None]
